FAERS Safety Report 23139624 (Version 1)
Quarter: 2023Q4

REPORT INFORMATION
  Report Type: Spontaneous
  Country: ES (occurrence: ES)
  Receive Date: 20231102
  Receipt Date: 20231102
  Transmission Date: 20240110
  Serious: Yes (Death, Other)
  Sender: FDA-Public Use
  Company Number: ES-AMGEN-ESPSP2023193098

PATIENT

DRUGS (1)
  1. BEVACIZUMAB [Suspect]
     Active Substance: BEVACIZUMAB
     Indication: Product used for unknown indication
     Dosage: UNK
     Route: 065

REACTIONS (19)
  - Adverse event [Fatal]
  - Neuropathy peripheral [Unknown]
  - Neutropenia [Unknown]
  - Hypothyroidism [Unknown]
  - Pneumonia [Unknown]
  - Embolic cerebral infarction [Unknown]
  - Alopecia [Unknown]
  - Myalgia [Unknown]
  - Hypertension [Unknown]
  - Rash [Unknown]
  - Decreased appetite [Unknown]
  - Fatigue [Unknown]
  - Pruritus [Unknown]
  - Anaemia [Unknown]
  - Proteinuria [Unknown]
  - Stomatitis [Unknown]
  - Nausea [Unknown]
  - Aspartate aminotransferase increased [Unknown]
  - Alanine aminotransferase increased [Unknown]
